FAERS Safety Report 10632369 (Version 1)
Quarter: 2014Q4

REPORT INFORMATION
  Report Type: Spontaneous
  Country: US (occurrence: US)
  Receive Date: 20141205
  Receipt Date: 20141205
  Transmission Date: 20150529
  Serious: No
  Sender: FDA-Public Use
  Company Number: US-BRISTOL-MYERS SQUIBB COMPANY-21238746

PATIENT
  Age: 48 Year
  Sex: Female
  Weight: 55.53 kg

DRUGS (4)
  1. PLAQUENIL [Concomitant]
     Active Substance: HYDROXYCHLOROQUINE SULFATE
     Indication: SYSTEMIC LUPUS ERYTHEMATOSUS
  2. ORENCIA [Suspect]
     Active Substance: ABATACEPT
     Indication: ARTHRALGIA
  3. BENICAR HCT [Concomitant]
     Active Substance: HYDROCHLOROTHIAZIDE\OLMESARTAN MEDOXOMIL
     Indication: HYPERTENSION
  4. METHOTREXATE [Concomitant]
     Active Substance: METHOTREXATE
     Indication: ARTHRALGIA

REACTIONS (4)
  - Drug ineffective [Unknown]
  - Pain [Unknown]
  - Nervousness [Unknown]
  - Fatigue [Recovering/Resolving]

NARRATIVE: CASE EVENT DATE: 20140723
